FAERS Safety Report 10195435 (Version 1)
Quarter: 2014Q2

REPORT INFORMATION
  Report Type: Spontaneous
  Country: ES (occurrence: ES)
  Receive Date: 20140526
  Receipt Date: 20140526
  Transmission Date: 20141212
  Serious: Yes (Hospitalization)
  Sender: FDA-Public Use
  Company Number: PHHY2014ES059379

PATIENT
  Age: 35 Year
  Sex: Female

DRUGS (4)
  1. RISPERIDONE [Suspect]
     Indication: PSYCHOTIC DISORDER
     Dosage: 9 MG, PER DAY
  2. RISPERIDONE [Suspect]
     Dosage: 6 MG, PER DAY
  3. ZUCLOPENTHIXOL [Concomitant]
     Indication: PSYCHOTIC DISORDER
     Dosage: 200 MG, EVERY 3 WEEKS
     Route: 030
  4. ARIPIPRAZOLE [Concomitant]
     Indication: PSYCHOTIC DISORDER
     Dosage: 30 MG, PER DAY

REACTIONS (5)
  - Psychotic disorder [Recovering/Resolving]
  - Sexual dysfunction [Recovered/Resolved]
  - Amenorrhoea [Recovered/Resolved]
  - Extrapyramidal disorder [Recovered/Resolved]
  - Drug ineffective [Unknown]
